FAERS Safety Report 4887632-1 (Version None)
Quarter: 2006Q1

REPORT INFORMATION
  Report Type: 
  Country: None (occurrence: None)
  Receive Date: 20060119
  Receipt Date: 20060119
  Transmission Date: 20060701
  Serious: Yes (Hospitalization)
  Sender: FDA-Public Use
  Company Number: None

PATIENT
  Age: 71 Year
  Sex: Male
  Weight: 108.4097 kg

DRUGS (3)
  1. AMIODARONE HCL [Suspect]
     Dosage: 200 MG QD
  2. METOPROLOL [Suspect]
     Dosage: 25 MG QD
  3. ZIPRASIDONE HCL [Suspect]

REACTIONS (4)
  - BRADYCARDIA [None]
  - DIZZINESS [None]
  - DYSSTASIA [None]
  - HEART RATE DECREASED [None]
